FAERS Safety Report 6284646-4 (Version None)
Quarter: 2009Q3

REPORT INFORMATION
  Report Type: 
  Country: None (occurrence: None)
  Receive Date: 20090723
  Receipt Date: 20090707
  Transmission Date: 20100115
  Serious: Yes (Other)
  Sender: FDA-Public Use
  Company Number: ISPH-2009-0239

PATIENT
  Age: 75 Year
  Sex: Female
  Weight: 61.2 kg

DRUGS (7)
  1. AZASITE [Suspect]
     Indication: EYE INFLAMMATION
     Dosage: 1 GTT, BID, OPHTHALMIC
     Route: 047
     Dates: start: 20090227, end: 20090201
  2. CLONIDINE [Concomitant]
  3. CYMBALTA [Concomitant]
  4. LORAZEPAM [Concomitant]
  5. SIMVASTATIN [Concomitant]
  6. DARVOCET (DEXTROPOXYPHENE HYDROCHLORIDE) [Concomitant]
  7. VERAPAMIL [Concomitant]

REACTIONS (11)
  - DYSPHAGIA [None]
  - DYSPNOEA [None]
  - ERYTHEMA OF EYELID [None]
  - EYE DISORDER [None]
  - MADAROSIS [None]
  - MULTIPLE ALLERGIES [None]
  - OCULAR HYPERAEMIA [None]
  - SKIN TIGHTNESS [None]
  - STEVENS-JOHNSON SYNDROME [None]
  - VISUAL IMPAIRMENT [None]
  - VOMITING [None]
